FAERS Safety Report 7349370-5 (Version None)
Quarter: 2011Q1

REPORT INFORMATION
  Report Type: 
  Country: None (occurrence: None)
  Receive Date: 20110304
  Receipt Date: 20101130
  Transmission Date: 20110831
  Serious: Yes (Other)
  Sender: FDA-Public Use
  Company Number: CH-GDP-10410093

PATIENT
  Sex: Male

DRUGS (1)
  1. METVIX (METHYL AMINOLEVULINATE HYDROCHLORIDE) 16% [Suspect]
     Indication: ACTINIC KERATOSIS
     Dosage: 1 DF TOPICAL
     Route: 061
     Dates: start: 20101117, end: 20101117

REACTIONS (4)
  - TREMOR [None]
  - EPILEPSY [None]
  - SKIN BURNING SENSATION [None]
  - NAUSEA [None]
